FAERS Safety Report 22179717 (Version 1)
Quarter: 2023Q2

REPORT INFORMATION
  Report Type: Spontaneous
  Country: CH (occurrence: None)
  Receive Date: 20230406
  Receipt Date: 20230406
  Transmission Date: 20230722
  Serious: Yes (Other)
  Sender: FDA-Public Use
  Company Number: CH-ROCHE-3324163

PATIENT

DRUGS (8)
  1. PERJETA [Suspect]
     Active Substance: PERTUZUMAB
     Indication: Breast cancer
     Route: 065
     Dates: start: 20200707
  2. TAXOL [Concomitant]
     Active Substance: PACLITAXEL
  3. HERCEPTIN [Concomitant]
     Active Substance: TRASTUZUMAB
     Route: 065
  4. ADRIAMYCIN [Concomitant]
     Active Substance: DOXORUBICIN HYDROCHLORIDE
  5. KADCYLA [Concomitant]
     Active Substance: ADO-TRASTUZUMAB EMTANSINE
  6. TAXOTERE [Concomitant]
     Active Substance: DOCETAXEL
  7. PARAPLATIN [Concomitant]
     Active Substance: CARBOPLATIN
  8. CYTOXAN [Concomitant]
     Active Substance: CYCLOPHOSPHAMIDE

REACTIONS (1)
  - Gastric disorder [Unknown]
